FAERS Safety Report 8644028 (Version 3)
Quarter: 2012Q4

REPORT INFORMATION
  Report Type: 
  Country: US (occurrence: US)
  Receive Date: 20120629
  Receipt Date: 20121220
  Transmission Date: 20130627
  Serious: Yes (Other)
  Sender: FDA-Public Use
  Company Number: US-GLAXOSMITHKLINE-A0982715A

PATIENT
  Sex: Female

DRUGS (2)
  1. ADVAIR [Suspect]
     Route: 065
  2. CONCURRENT MEDICATIONS [Concomitant]

REACTIONS (2)
  - Grand mal convulsion [Unknown]
  - Drug administration error [Unknown]
